FAERS Safety Report 6627937-7 (Version None)
Quarter: 2010Q1

REPORT INFORMATION
  Report Type: 
  Country: None (occurrence: None)
  Receive Date: 20100311
  Receipt Date: 20090406
  Transmission Date: 20100710
  Serious: No
  Sender: FDA-Public Use
  Company Number: A0777350A

PATIENT
  Sex: Female

DRUGS (2)
  1. NICORETTE [Suspect]
  2. GUAIFENESIN [Suspect]

REACTIONS (1)
  - DRUG INTERACTION [None]
